FAERS Safety Report 7068566-3 (Version None)
Quarter: 2010Q4

REPORT INFORMATION
  Report Type: 
  Country: None (occurrence: None)
  Receive Date: 20101027
  Receipt Date: 20101027
  Transmission Date: 20110411
  Serious: Yes (Life-Threatening)
  Sender: FDA-Public Use
  Company Number: None

PATIENT
  Age: 73 Year
  Sex: Female
  Weight: 104.3273 kg

DRUGS (2)
  1. CYMBALTA [Suspect]
     Indication: FIBROMYALGIA
     Dosage: ONE EA DAY PO
     Route: 048
     Dates: start: 20101010, end: 20101014
  2. SAVELLA [Suspect]
     Indication: FIBROMYALGIA
     Dosage: ONE TWICE A DAY PO
     Route: 048
     Dates: start: 20101018, end: 20101020

REACTIONS (6)
  - BLOOD PRESSURE INCREASED [None]
  - CONSTIPATION [None]
  - FEELING ABNORMAL [None]
  - FORMICATION [None]
  - MIDDLE INSOMNIA [None]
  - NAUSEA [None]
